FAERS Safety Report 10395575 (Version 1)
Quarter: 2014Q3

REPORT INFORMATION
  Report Type: Spontaneous
  Country: US (occurrence: None)
  Receive Date: 20140819
  Receipt Date: 20140819
  Transmission Date: 20150326
  Serious: No
  Sender: FDA-Public Use
  Company Number: None

PATIENT
  Sex: Female

DRUGS (1)
  1. SOVALDI [Suspect]
     Active Substance: SOFOSBUVIR
     Indication: HEPATITIS C
     Route: 048
     Dates: start: 20140604

REACTIONS (7)
  - Depression [None]
  - Headache [None]
  - Weight increased [None]
  - Anxiety [None]
  - Infection [None]
  - Affect lability [None]
  - Iron deficiency [None]
